FAERS Safety Report 25773501 (Version 2)
Quarter: 2025Q4

REPORT INFORMATION
  Report Type: Spontaneous
  Country: GB (occurrence: None)
  Receive Date: 20250908
  Receipt Date: 20251120
  Transmission Date: 20260118
  Serious: Yes (Death, Hospitalization, Other)
  Sender: UCB
  Company Number: None

PATIENT
  Age: 71 Year

DRUGS (1)
  1. BIMEKIZUMAB [Suspect]
     Active Substance: BIMEKIZUMAB
     Indication: Psoriasis
     Dosage: UNK, EV 8 WEEKS

REACTIONS (3)
  - Colitis [Fatal]
  - Pneumonia [Fatal]
  - Septic shock [Fatal]
